FAERS Safety Report 7028737-9 (Version None)
Quarter: 2010Q4

REPORT INFORMATION
  Report Type: 
  Country: None (occurrence: None)
  Receive Date: 20101004
  Receipt Date: 20101004
  Transmission Date: 20110411
  Serious: Yes (Hospitalization)
  Sender: FDA-Public Use
  Company Number: None

PATIENT
  Age: 39 Year
  Sex: Male

DRUGS (2)
  1. FAZACLO ODT [Suspect]
     Dosage: 75MG AM PO
     Route: 048
     Dates: start: 20091214, end: 20100104
  2. FAZACLO ODT [Suspect]
     Dosage: 100MG HS PO
     Route: 048
     Dates: start: 20091214, end: 20100104

REACTIONS (1)
  - PYREXIA [None]
